FAERS Safety Report 9356597 (Version 2)
Quarter: 2013Q3

REPORT INFORMATION
  Report Type: Report from Study
  Country: GB (occurrence: GB)
  Receive Date: 20130619
  Receipt Date: 20130709
  Transmission Date: 20140515
  Serious: Yes (Other)
  Sender: FDA-Public Use
  Company Number: GB-VERTEX PHARMACEUTICALS INC-2013-005924

PATIENT
  Age: 27 Year
  Sex: Male

DRUGS (3)
  1. VX-950 (TELAPREVIR) [Suspect]
     Indication: HEPATITIS C
     Dosage: 750 MG, TID
     Route: 048
     Dates: start: 20130408, end: 20130701
  2. RIBAVIRIN [Concomitant]
     Indication: HEPATITIS C
     Dosage: UNK, BID
     Route: 048
  3. PEG INTERFERON [Concomitant]
     Indication: HEPATITIS C
     Dosage: UNK, QW
     Route: 058

REACTIONS (7)
  - Fatigue [None]
  - Abdominal distension [Not Recovered/Not Resolved]
  - Vision blurred [None]
  - Dry eye [None]
  - Dry mouth [Not Recovered/Not Resolved]
  - Dry skin [None]
  - Pruritus [Not Recovered/Not Resolved]
